FAERS Safety Report 7301315-X (Version None)
Quarter: 2011Q1

REPORT INFORMATION
  Report Type: 
  Country: None (occurrence: None)
  Receive Date: 20110113
  Receipt Date: 20101228
  Transmission Date: 20110831
  Serious: Yes (Hospitalization, Other)
  Sender: FDA-Public Use
  Company Number: COM10-1789

PATIENT
  Age: 78 Year
  Sex: Male

DRUGS (2)
  1. ORAL HYPOGLYCAEMIC AGENT [Concomitant]
  2. PROPOXYPHENE NAPSYLATE AND ACETAMINOPHEN [Suspect]
     Indication: MIGRAINE
     Dosage: 2 PO PRN, SEVERAL YEARS
     Route: 048

REACTIONS (1)
  - CEREBROVASCULAR ACCIDENT [None]
